FAERS Safety Report 20347334 (Version 2)
Quarter: 2022Q1

REPORT INFORMATION
  Report Type: Spontaneous
  Country: US (occurrence: US)
  Receive Date: 20220118
  Receipt Date: 20220119
  Transmission Date: 20220423
  Serious: Yes (Hospitalization, Other)
  Sender: FDA-Public Use
  Company Number: US-SUNOVION-2022SUN000091

PATIENT
  Age: 71 Year
  Sex: Female

DRUGS (2)
  1. LATUDA [Suspect]
     Active Substance: LURASIDONE HYDROCHLORIDE
     Dosage: 20 MG, QD
     Route: 048
  2. LATUDA [Suspect]
     Active Substance: LURASIDONE HYDROCHLORIDE
     Dosage: 60 MG
     Route: 048

REACTIONS (7)
  - Cardiac failure [Unknown]
  - Myocardial infarction [Unknown]
  - Spinal cord neoplasm [Unknown]
  - Suicide attempt [Unknown]
  - Cancer pain [Unknown]
  - Rotator cuff syndrome [Unknown]
  - Inappropriate schedule of product administration [Unknown]
